FAERS Safety Report 9044901 (Version 1)
Quarter: 2013Q1

REPORT INFORMATION
  Report Type: Report from Study
  Country: JP (occurrence: JP)
  Receive Date: 20130130
  Receipt Date: 20130130
  Transmission Date: 20140127
  Serious: Yes (Other)
  Sender: FDA-Public Use
  Company Number: JP-GLAXOSMITHKLINE-B0860259A

PATIENT
  Age: 63 None
  Sex: Male

DRUGS (15)
  1. HEPSERA [Suspect]
     Indication: HEPATIC CIRRHOSIS
     Dosage: 10MG PER DAY
     Route: 048
     Dates: start: 20040224
  2. ZEFIX [Suspect]
     Indication: HEPATIC CIRRHOSIS
     Route: 048
     Dates: start: 20020224, end: 20040629
  3. ZEFIX [Suspect]
     Indication: HEPATIC CIRRHOSIS
     Dosage: 100MG PER DAY
     Route: 048
     Dates: start: 20040630, end: 20040727
  4. ZEFIX [Suspect]
     Indication: HEPATIC CIRRHOSIS
     Dosage: 100MG PER DAY
     Route: 048
     Dates: start: 20040811, end: 20041004
  5. ZEFIX [Suspect]
     Indication: HEPATIC CIRRHOSIS
     Dosage: 100MG PER DAY
     Route: 048
     Dates: start: 20041020
  6. LIPITOR [Concomitant]
     Route: 048
  7. ALDACTONE A [Concomitant]
     Route: 048
  8. LASIX [Concomitant]
     Route: 048
  9. ALBUMIN [Concomitant]
     Route: 042
  10. PL [Concomitant]
     Route: 048
  11. DASEN [Concomitant]
     Route: 048
  12. MEDICON [Concomitant]
  13. CRAVIT [Concomitant]
     Route: 048
  14. LAC B [Concomitant]
     Route: 048
  15. TANNALBIN [Concomitant]
     Route: 048

REACTIONS (6)
  - Ascites [Recovering/Resolving]
  - Hyperlipidaemia [Recovering/Resolving]
  - Blood creatinine increased [Recovering/Resolving]
  - Abdominal distension [Recovering/Resolving]
  - Oedema peripheral [Recovering/Resolving]
  - Upper respiratory tract inflammation [Recovered/Resolved]
